FAERS Safety Report 19922340 (Version 3)
Quarter: 2022Q2

REPORT INFORMATION
  Report Type: Report from Study
  Country: US (occurrence: None)
  Receive Date: 20211006
  Receipt Date: 20220513
  Transmission Date: 20220720
  Serious: Yes (Other)
  Sender: FDA-Public Use
  Company Number: US-ROCHE-2677198

PATIENT
  Age: 65 Year
  Sex: Male
  Weight: 83.5 kg

DRUGS (6)
  1. OBINUTUZUMAB [Suspect]
     Active Substance: OBINUTUZUMAB
     Indication: Chronic lymphocytic leukaemia
     Dosage: LAST DOSE OF OBINUTUZUMAB WAS ADMINISTERED ON 12/NOV//2020
     Route: 042
     Dates: start: 20200820
  2. OBINUTUZUMAB [Suspect]
     Active Substance: OBINUTUZUMAB
     Route: 042
  3. OBINUTUZUMAB [Suspect]
     Active Substance: OBINUTUZUMAB
     Dosage: 1000 MG DAY 15, CYCLE 1?1000 MG DAY 1, CYCLE 2-6
     Route: 042
  4. OBINUTUZUMAB [Suspect]
     Active Substance: OBINUTUZUMAB
     Dosage: DATE OF LAST ADMINISTERED DOSE: 25/AUG/2020 2000 MG TOTAL DOSE ?C1D15 OMITTED. RESUME C2D1 IF COUNTS
     Route: 042
  5. OBINUTUZUMAB [Suspect]
     Active Substance: OBINUTUZUMAB
     Dosage: DATE OF LAST ADMINISTERED DOSE: 10/DEC/2020?MOST RECENT DOSE: 07/JAN/2021 1000 MG
     Route: 042
  6. IBRUTINIB [Suspect]
     Active Substance: IBRUTINIB
     Indication: Chronic lymphocytic leukaemia
     Dosage: LAST DOSE ADMINSTERED ON 09/DEC/2020?LAST DOSE ADMINSTERED ON 06/JAN/2021?LAST DOSE ADMINSTERED ON 0
     Route: 048
     Dates: start: 20200820

REACTIONS (6)
  - Neutrophil count decreased [Recovering/Resolving]
  - Platelet count decreased [Recovered/Resolved]
  - White blood cell count decreased [Recovering/Resolving]
  - Lymphocyte count decreased [Recovering/Resolving]
  - Squamous cell carcinoma [Recovering/Resolving]
  - Lymphocyte count decreased [Recovering/Resolving]

NARRATIVE: CASE EVENT DATE: 20200822
